FAERS Safety Report 19245413 (Version 1)
Quarter: 2021Q2

REPORT INFORMATION
  Report Type: Report from Study
  Country: ES (occurrence: ES)
  Receive Date: 20210511
  Receipt Date: 20210511
  Transmission Date: 20210717
  Serious: Yes (Other)
  Sender: FDA-Public Use
  Company Number: ES-GILEAD-2020-0489875AA

PATIENT
  Age: 55 Year
  Sex: Male
  Weight: 150 kg

DRUGS (4)
  1. REMDESIVIR. [Suspect]
     Active Substance: REMDESIVIR
     Dosage: 100 MG, QD
     Route: 042
     Dates: start: 20200728, end: 20200730
  2. FUROSEMIDA [FUROSEMIDE] [Concomitant]
     Active Substance: FUROSEMIDE
  3. REMDESIVIR. [Suspect]
     Active Substance: REMDESIVIR
     Indication: COVID-19 PNEUMONIA
     Dosage: 200 MG, QD
     Route: 042
     Dates: start: 20200727, end: 20200727
  4. METILPREDNISOLONA [METHYLPREDNISOLONE] [Concomitant]
     Active Substance: METHYLPREDNISOLONE

REACTIONS (1)
  - Hyperamylasaemia [Recovering/Resolving]

NARRATIVE: CASE EVENT DATE: 20200728
